FAERS Safety Report 10753017 (Version 1)
Quarter: 2015Q1

REPORT INFORMATION
  Report Type: Spontaneous
  Country: CA (occurrence: CA)
  Receive Date: 20150130
  Receipt Date: 20150130
  Transmission Date: 20150721
  Serious: Yes (Other)
  Sender: FDA-Public Use
  Company Number: CA-BAUSCH-BL-2012-002247

PATIENT
  Age: 33 Year
  Sex: Female

DRUGS (5)
  1. LOTEMAX [Suspect]
     Active Substance: LOTEPREDNOL ETABONATE
     Indication: POSTOPERATIVE CARE
     Dosage: TAKEN IN BOTH EYES BUT TWICE IN LEFT EYES
     Route: 047
  2. BESIVANCE [Suspect]
     Active Substance: BESIFLOXACIN
     Indication: POSTOPERATIVE CARE
     Dosage: TAKEN IN BOTH EYES BUT TWICE IN LEFT EYES
     Route: 047
  3. LOTEMAX [Suspect]
     Active Substance: LOTEPREDNOL ETABONATE
     Route: 047
     Dates: start: 20121122
  4. SYNTHROID [Concomitant]
     Active Substance: LEVOTHYROXINE SODIUM
     Indication: PRODUCT USED FOR UNKNOWN INDICATION
  5. LIPOSIC OPHTHALMIC DROPS [Suspect]
     Active Substance: CARBOMER
     Indication: POSTOPERATIVE CARE
     Dosage: TAKEN IN BOTH EYES BUT TWICE IN LEFT EYES
     Route: 047

REACTIONS (10)
  - Corneal oedema [Not Recovered/Not Resolved]
  - Corneal deposits [Unknown]
  - Eye pain [Not Recovered/Not Resolved]
  - Diffuse lamellar keratitis [Not Recovered/Not Resolved]
  - Eye inflammation [Unknown]
  - Foreign body sensation in eyes [Recovered/Resolved]
  - Vision blurred [Not Recovered/Not Resolved]
  - Eye irritation [Recovered/Resolved]
  - Medication residue present [Recovered/Resolved]
  - Intentional product use issue [Unknown]

NARRATIVE: CASE EVENT DATE: 20121108
